FAERS Safety Report 8891023 (Version 1)
Quarter: 2012Q4

REPORT INFORMATION
  Report Type: 
  Country: US (occurrence: US)
  Receive Date: 20121107
  Receipt Date: 20121107
  Transmission Date: 20130627
  Serious: Yes (Other)
  Sender: FDA-Public Use
  Company Number: US-ROCHE-787392

PATIENT
  Age: 23 None
  Sex: Male
  Weight: 65.83 kg

DRUGS (3)
  1. ACCUTANE [Suspect]
     Indication: ACNE
     Route: 065
  2. ACCUTANE [Suspect]
     Route: 065
  3. ALBUTEROL [Concomitant]

REACTIONS (6)
  - Crohn^s disease [Unknown]
  - Colitis ulcerative [Unknown]
  - Anxiety [Unknown]
  - Inflammatory bowel disease [Unknown]
  - Irritable bowel syndrome [Unknown]
  - Ligament sprain [Unknown]
